FAERS Safety Report 8085203-X (Version None)
Quarter: 2012Q1

REPORT INFORMATION
  Report Type: 
  Country: None (occurrence: None)
  Receive Date: 20120128
  Receipt Date: 20110328
  Transmission Date: 20120608
  Serious: No
  Sender: FDA-Public Use
  Company Number: US-ABBOTT-11P-163-0714917-00

PATIENT
  Age: 63 Year
  Sex: Female

DRUGS (11)
  1. BENZTROPINE MESYLATE [Concomitant]
     Indication: MENTAL DISORDER
  2. PRIMIDONE [Concomitant]
     Indication: EPILEPSY
  3. HALDOL [Concomitant]
     Indication: PRODUCT USED FOR UNKNOWN INDICATION
  4. PAXIL [Concomitant]
     Indication: DEPRESSION
  5. DILANTIN [Concomitant]
     Indication: CONVULSION
  6. HUMIRA [Suspect]
     Indication: RHEUMATOID ARTHRITIS
  7. ANTENOLOL [Concomitant]
     Indication: PRODUCT USED FOR UNKNOWN INDICATION
     Dosage: HALF TAB
  8. ZOMIG [Concomitant]
     Indication: HEADACHE
  9. EVISTA [Concomitant]
     Indication: PRODUCT USED FOR UNKNOWN INDICATION
  10. ZOLPIDEM [Concomitant]
     Indication: INSOMNIA
  11. FOLIC ACID [Concomitant]
     Indication: PRODUCT USED FOR UNKNOWN INDICATION

REACTIONS (2)
  - BUNION [None]
  - INJECTION SITE PAIN [None]
